FAERS Safety Report 12291450 (Version 4)
Quarter: 2016Q4

REPORT INFORMATION
  Report Type: Spontaneous
  Country: FR (occurrence: FR)
  Receive Date: 20160421
  Receipt Date: 20161201
  Transmission Date: 20170207
  Serious: Yes (Disabling, Congenital Anomaly, Other)
  Sender: FDA-Public Use
  Company Number: FR-ABBVIE-16P-056-1610164-00

PATIENT
  Sex: Male

DRUGS (2)
  1. VALIUM [Concomitant]
     Active Substance: DIAZEPAM
     Indication: PRODUCT USED FOR UNKNOWN INDICATION
  2. DEPAKINE [Suspect]
     Active Substance: VALPROATE SODIUM
     Indication: MATERNAL EXPOSURE TIMING UNSPECIFIED
     Route: 064

REACTIONS (20)
  - Hypotonia [Unknown]
  - Ataxia [Unknown]
  - Respiratory distress [Recovered/Resolved]
  - Fall [Unknown]
  - Strabismus [Unknown]
  - Autism spectrum disorder [Not Recovered/Not Resolved]
  - Speech disorder [Unknown]
  - Pectus excavatum [Unknown]
  - Foot deformity [Unknown]
  - Psychomotor retardation [Unknown]
  - Intellectual disability [Unknown]
  - Incontinence [Not Recovered/Not Resolved]
  - Scoliosis [Unknown]
  - Personality disorder [Unknown]
  - Plagiocephaly [Unknown]
  - Foetal exposure during pregnancy [Unknown]
  - Talipes [Unknown]
  - Dysmorphism [Unknown]
  - Mental disorder [Not Recovered/Not Resolved]
  - Tooth malformation [Unknown]

NARRATIVE: CASE EVENT DATE: 19980216
